FAERS Safety Report 6295348-2 (Version None)
Quarter: 2009Q3

REPORT INFORMATION
  Report Type: 
  Country: None (occurrence: None)
  Receive Date: 20090803
  Receipt Date: 20090720
  Transmission Date: 20100115
  Serious: Yes (Disabling, Other)
  Sender: FDA-Public Use
  Company Number: GB-MYLANLABS-2009S1012903

PATIENT
  Age: 43 Year
  Sex: Female

DRUGS (1)
  1. DOXYCYCLINE [Suspect]
     Indication: MALARIA PROPHYLAXIS
     Route: 048
     Dates: start: 20081204, end: 20081211

REACTIONS (4)
  - BLISTER [None]
  - DERMATITIS BULLOUS [None]
  - PHOTOSENSITIVITY REACTION [None]
  - PRURITUS [None]
